FAERS Safety Report 22099819 (Version 1)
Quarter: 2023Q1

REPORT INFORMATION
  Report Type: Spontaneous
  Country: US (occurrence: US)
  Receive Date: 20230315
  Receipt Date: 20230315
  Transmission Date: 20230418
  Serious: Yes (Other)
  Sender: FDA-Public Use
  Company Number: US-ALLERGAN-2307466US

PATIENT
  Sex: Female

DRUGS (4)
  1. FML [Suspect]
     Active Substance: FLUOROMETHOLONE
     Indication: Postoperative care
     Dosage: ACTUAL: 2 DROPS FOR THE LEFT EYE AND 1 DROP FOR THE RIGHT EYE
     Route: 047
     Dates: start: 202212
  2. FML [Suspect]
     Active Substance: FLUOROMETHOLONE
     Indication: Glaucoma
     Dosage: 1 DF, QID
  3. FML [Suspect]
     Active Substance: FLUOROMETHOLONE
     Dosage: 1 DF, QD
     Dates: start: 2019
  4. TIMOLOL MALEATE [Suspect]
     Active Substance: TIMOLOL MALEATE
     Indication: Glaucoma
     Route: 047
     Dates: start: 202209, end: 20221219

REACTIONS (6)
  - Blindness unilateral [Recovered/Resolved]
  - Corneal transplant [Unknown]
  - Rash [Not Recovered/Not Resolved]
  - Corneal scar [Unknown]
  - Corneal irritation [Unknown]
  - Rash pruritic [Not Recovered/Not Resolved]

NARRATIVE: CASE EVENT DATE: 20190101
